FAERS Safety Report 6073354-0 (Version None)
Quarter: 2009Q1

REPORT INFORMATION
  Report Type: 
  Country: None (occurrence: None)
  Receive Date: 20090211
  Receipt Date: 20090204
  Transmission Date: 20090719
  Serious: Yes (Other)
  Sender: FDA-Public Use
  Company Number: PHHY2009IE01064

PATIENT
  Sex: Female

DRUGS (9)
  1. CLOZARIL [Suspect]
     Indication: SCHIZOPHRENIA
     Dosage: UNK
     Dates: start: 20060216
  2. CHLORPHENIRAMINE MALEATE [Concomitant]
     Dosage: UNK
  3. AMISULPRIDE [Concomitant]
     Indication: SCHIZOPHRENIA
     Dosage: 800 MG, UNK
     Route: 048
  4. THYROXINE [Concomitant]
     Indication: HYPOTHYROIDISM
     Dosage: 100 UG, UNK
     Route: 048
  5. LITHIUM CARBONATE [Concomitant]
     Indication: SCHIZOAFFECTIVE DISORDER
     Dosage: 800 MG, UNK
     Route: 048
  6. VENLAFAXINE HCL [Concomitant]
     Indication: SCHIZOAFFECTIVE DISORDER
     Dosage: 225 MG, UNK
     Route: 048
  7. ASPIRIN [Concomitant]
  8. FOLIC ACID [Concomitant]
  9. GALFER [Concomitant]

REACTIONS (2)
  - CELLULITIS [None]
  - SOMNOLENCE [None]
